FAERS Safety Report 19713435 (Version 1)
Quarter: 2021Q3

REPORT INFORMATION
  Report Type: Spontaneous
  Country: DK (occurrence: DK)
  Receive Date: 20210817
  Receipt Date: 20210817
  Transmission Date: 20211014
  Serious: No
  Sender: FDA-Public Use
  Company Number: DK-JAZZ-2021-DK-007642

PATIENT
  Sex: Female

DRUGS (1)
  1. XYREM [Suspect]
     Active Substance: SODIUM OXYBATE
     Indication: SLEEP DISORDER
     Dosage: UNKNOWN DOSE
     Route: 048

REACTIONS (4)
  - Abdominal discomfort [Unknown]
  - Wrong technique in product usage process [Unknown]
  - Off label use [Unknown]
  - Dysphagia [Unknown]
